FAERS Safety Report 10166667 (Version 1)
Quarter: 2014Q2

REPORT INFORMATION
  Report Type: Spontaneous
  Country: DE (occurrence: None)
  Receive Date: 20140508
  Receipt Date: 20140508
  Transmission Date: 20141212
  Serious: Yes (Death, Hospitalization)
  Sender: FDA-Public Use
  Company Number: 2014P1003566

PATIENT
  Age: 59 Year
  Sex: Female

DRUGS (1)
  1. ALENDRONATE [Suspect]
     Indication: OSTEOPOROSIS
     Route: 048

REACTIONS (11)
  - Infection [None]
  - Local swelling [None]
  - Osteonecrosis of jaw [None]
  - Septic shock [None]
  - Pneumonia [None]
  - Jugular vein thrombosis [None]
  - Multi-organ failure [None]
  - Arteriovenous fistula [None]
  - Klebsiella test positive [None]
  - Pseudomonas test positive [None]
  - Enterococcus test positive [None]
